FAERS Safety Report 11583368 (Version 2)
Quarter: 2016Q1

REPORT INFORMATION
  Report Type: Spontaneous
  Country: US (occurrence: US)
  Receive Date: 20151001
  Receipt Date: 20160329
  Transmission Date: 20160525
  Serious: Yes (Life-Threatening, Hospitalization)
  Sender: FDA-Public Use
  Company Number: US-BAYER-2015-434339

PATIENT
  Age: 31 Year
  Sex: Female
  Weight: 70.3 kg

DRUGS (1)
  1. MIRENA [Suspect]
     Active Substance: LEVONORGESTREL
     Indication: CONTRACEPTION
     Dosage: 20 MG/24HR, CONT
     Route: 015
     Dates: start: 20121031, end: 20131031

REACTIONS (6)
  - Injury [None]
  - Infection [None]
  - Device use error [None]
  - Abdominal pain lower [None]
  - General physical health deterioration [None]
  - Uterine perforation [None]

NARRATIVE: CASE EVENT DATE: 20131030
